FAERS Safety Report 5869196-9 (Version None)
Quarter: 2008Q3

REPORT INFORMATION
  Report Type: 
  Country: None (occurrence: None)
  Receive Date: 20080828
  Receipt Date: 20080819
  Transmission Date: 20090109
  Serious: Yes (Life-Threatening, Hospitalization)
  Sender: FDA-Public Use
  Company Number: 2008BI019320

PATIENT
  Age: 40 Year
  Sex: Male
  Weight: 61.2356 kg

DRUGS (6)
  1. TYSABRI [Suspect]
     Indication: MULTIPLE SCLEROSIS
     Dosage: 300 MG;QM;IV
     Route: 042
     Dates: start: 20070426
  2. BACLOFEN [Concomitant]
  3. ZOLOFT [Concomitant]
  4. PROVIGIL [Concomitant]
  5. COPAXONE [Concomitant]
  6. NOVANTRONE [Concomitant]

REACTIONS (11)
  - BLOOD GLUCOSE INCREASED [None]
  - CONCUSSION [None]
  - CONTUSION [None]
  - CONVULSION [None]
  - FALL [None]
  - HEAD INJURY [None]
  - MOVEMENT DISORDER [None]
  - PNEUMONIA ASPIRATION [None]
  - PULMONARY GRANULOMA [None]
  - ROAD TRAFFIC ACCIDENT [None]
  - SKULL FRACTURE [None]
